FAERS Safety Report 25153176 (Version 2)
Quarter: 2025Q2

REPORT INFORMATION
  Report Type: Spontaneous
  Country: US (occurrence: US)
  Receive Date: 20250403
  Receipt Date: 20250423
  Transmission Date: 20250716
  Serious: Yes (Hospitalization, Other)
  Sender: AUROBINDO
  Company Number: US-MLMSERVICE-20250317-PI445216-00139-1

PATIENT
  Sex: Female

DRUGS (1)
  1. NORETHINDRONE AND ETHINYL ESTRADIOL [Suspect]
     Active Substance: ETHINYL ESTRADIOL\NORETHINDRONE
     Indication: Oral contraception
     Route: 048

REACTIONS (2)
  - Cerebral venous thrombosis [Unknown]
  - Hyperhomocysteinaemia [Unknown]
